FAERS Safety Report 26201580 (Version 1)
Quarter: 2025Q4

REPORT INFORMATION
  Report Type: Spontaneous
  Country: GB (occurrence: GB)
  Receive Date: 20251226
  Receipt Date: 20251226
  Transmission Date: 20260117
  Serious: Yes (Life-Threatening, Other)
  Sender: TEVA
  Company Number: None

PATIENT
  Age: 38 Year
  Sex: Female

DRUGS (5)
  1. MIRTAZAPINE [Suspect]
     Active Substance: MIRTAZAPINE
     Indication: Obsessive-compulsive disorder
     Route: 065
  2. FERROUS FUMARATE [Concomitant]
     Active Substance: FERROUS FUMARATE
     Indication: Iron deficiency
     Dosage: 420MG/DAY
     Dates: start: 20230801
  3. CHOLECALCIFEROL [Concomitant]
     Active Substance: CHOLECALCIFEROL
     Indication: Vitamin D decreased
     Dosage: 800IU
  4. MINERALS\VITAMINS [Concomitant]
     Active Substance: MINERALS\VITAMINS
     Indication: Breast feeding
     Dosage: BREASTFEEDING VITAMINS WITH OMEGA 3
     Dates: start: 20240515
  5. FISH OIL [Concomitant]
     Active Substance: FISH OIL
     Indication: Brain fog
     Dosage: SUPPLEMENT
     Dates: start: 20240801

REACTIONS (6)
  - Cholecystitis [Unknown]
  - Pancreatitis acute [Recovering/Resolving]
  - Pancreatitis necrotising [Unknown]
  - Weight decreased [Unknown]
  - Maternal exposure during breast feeding [Unknown]
  - Malnutrition [Unknown]

NARRATIVE: CASE EVENT DATE: 20250316
